FAERS Safety Report 7211671-9 (Version None)
Quarter: 2011Q1

REPORT INFORMATION
  Report Type: 
  Country: None (occurrence: None)
  Receive Date: 20110105
  Receipt Date: 20101230
  Transmission Date: 20110831
  Serious: Yes (Other)
  Sender: FDA-Public Use
  Company Number: US-AMGEN-QUU411506

PATIENT

DRUGS (16)
  1. PREDNISONE [Concomitant]
     Dosage: UNK MG, QOD
  2. NPLATE [Suspect]
     Indication: IDIOPATHIC THROMBOCYTOPENIC PURPURA
     Dosage: UNK UNK, QWK
     Route: 058
     Dates: start: 20081216
  3. LORAZEPAM [Concomitant]
     Dosage: UNK UNK, UNK
     Dates: start: 20100401
  4. GABAPENTIN [Concomitant]
  5. NPLATE [Suspect]
     Dosage: UNK
  6. SOLU-MEDROL [Concomitant]
  7. NPLATE [Suspect]
     Dates: start: 20081118
  8. NPLATE [Suspect]
     Dosage: UNK
     Dates: end: 20101109
  9. NPLATE [Suspect]
     Dosage: UNK
     Dates: end: 20101109
  10. FLEXERIL [Concomitant]
  11. VICODIN [Concomitant]
  12. NPLATE [Suspect]
     Dates: start: 20081118
  13. NPLATE [Suspect]
     Dates: start: 20081118
  14. CORTICOSTEROID NOS [Concomitant]
  15. BENADRYL [Concomitant]
  16. METFORMIN HCL [Concomitant]
     Dosage: UNK UNK, UNK
     Dates: start: 20100301

REACTIONS (13)
  - THERAPEUTIC RESPONSE UNEXPECTED [None]
  - PRURITUS [None]
  - CONTUSION [None]
  - PAIN IN EXTREMITY [None]
  - OEDEMA PERIPHERAL [None]
  - BACK PAIN [None]
  - NEUROPATHY PERIPHERAL [None]
  - THERAPEUTIC RESPONSE DECREASED [None]
  - PETECHIAE [None]
  - ABDOMINAL PAIN [None]
  - MUSCULOSKELETAL PAIN [None]
  - PAIN [None]
  - PLATELET COUNT ABNORMAL [None]
